FAERS Safety Report 16337278 (Version 3)
Quarter: 2019Q4

REPORT INFORMATION
  Report Type: Report from Study
  Country: None (occurrence: US)
  Receive Date: 20190521
  Receipt Date: 20191127
  Transmission Date: 20200122
  Serious: Yes (Other)
  Sender: FDA-Public Use
  Company Number: US-ABBVIE-19S-163-2786381-00

PATIENT
  Age: 30 Year
  Sex: Female

DRUGS (7)
  1. PREZISTA [Suspect]
     Active Substance: DARUNAVIR ETHANOLATE
     Indication: PRODUCT USED FOR UNKNOWN INDICATION
     Route: 048
     Dates: end: 20190312
  2. NORVIR [Suspect]
     Active Substance: RITONAVIR
     Route: 048
     Dates: start: 20190329
  3. NORVIR [Suspect]
     Active Substance: RITONAVIR
     Indication: PRODUCT USED FOR UNKNOWN INDICATION
     Route: 048
     Dates: end: 20190312
  4. EPZICOM [Suspect]
     Active Substance: ABACAVIR SULFATE\LAMIVUDINE
     Indication: PRODUCT USED FOR UNKNOWN INDICATION
     Dosage: TAB/CAPS
     Route: 048
  5. NORVIR [Suspect]
     Active Substance: RITONAVIR
     Route: 048
     Dates: start: 20190312, end: 20190329
  6. PREZISTA [Suspect]
     Active Substance: DARUNAVIR ETHANOLATE
     Route: 048
     Dates: start: 20190312, end: 20190329
  7. PREZISTA [Suspect]
     Active Substance: DARUNAVIR ETHANOLATE
     Route: 048
     Dates: start: 20190329

REACTIONS (5)
  - Exposure during pregnancy [Unknown]
  - Twin pregnancy [Unknown]
  - Abortion induced [Unknown]
  - Amniotic fluid volume decreased [Unknown]
  - Drug use disorder [Unknown]

NARRATIVE: CASE EVENT DATE: 20190329
